FAERS Safety Report 10196582 (Version 1)
Quarter: 2014Q2

REPORT INFORMATION
  Report Type: Spontaneous
  Country: US (occurrence: US)
  Receive Date: 20140527
  Receipt Date: 20140527
  Transmission Date: 20141212
  Serious: No
  Sender: FDA-Public Use
  Company Number: US-009507513-1405USA009802

PATIENT
  Age: 11 Year
  Sex: Female

DRUGS (1)
  1. DULERA [Suspect]
     Indication: ASTHMA
     Dosage: 100/5 MCG/ BID
     Route: 055
     Dates: start: 20140319

REACTIONS (4)
  - Headache [Recovered/Resolved]
  - Drug administered to patient of inappropriate age [Unknown]
  - Incorrect dose administered [Unknown]
  - Off label use [Unknown]
